FAERS Safety Report 9321983 (Version 1)
Quarter: 2013Q2

REPORT INFORMATION
  Report Type: Spontaneous
  Country: US (occurrence: US)
  Receive Date: 20130531
  Receipt Date: 20130531
  Transmission Date: 20140414
  Serious: Yes (Other)
  Sender: FDA-Public Use
  Company Number: US-ASTRAZENECA-2013SE36498

PATIENT
  Sex: Female

DRUGS (3)
  1. SYMBICORT [Suspect]
     Indication: ASTHMA
     Route: 055
     Dates: start: 201305
  2. PROAIR [Concomitant]
  3. ALBUTEROL [Concomitant]

REACTIONS (17)
  - Malaise [Unknown]
  - Vulvovaginal candidiasis [Unknown]
  - Fatigue [Unknown]
  - Vomiting [Unknown]
  - Dysphagia [Unknown]
  - Migraine [Unknown]
  - Oral discomfort [Unknown]
  - Infrequent bowel movements [Unknown]
  - Toxicity to various agents [Unknown]
  - Oesophageal pain [Unknown]
  - Activities of daily living impaired [Unknown]
  - Oral candidiasis [Unknown]
  - Rash generalised [Unknown]
  - Headache [Unknown]
  - Rash [Unknown]
  - Rash [Unknown]
  - Intentional drug misuse [Unknown]
